FAERS Safety Report 4972321-5 (Version None)
Quarter: 2006Q2

REPORT INFORMATION
  Report Type: 
  Country: None (occurrence: None)
  Receive Date: 20060413
  Receipt Date: 20060412
  Transmission Date: 20061013
  Serious: Yes (Hospitalization)
  Sender: FDA-Public Use
  Company Number: CL-BOEHRINGER INGELHEIM PHARMACEUTICALS, INC.-2006-BP-04139RA

PATIENT

DRUGS (1)
  1. COMBIVENT [Suspect]
     Route: 055

REACTIONS (1)
  - OBSTRUCTIVE AIRWAYS DISORDER [None]
